FAERS Safety Report 14267699 (Version 1)
Quarter: 2017Q4

REPORT INFORMATION
  Report Type: Spontaneous
  Country: US (occurrence: US)
  Receive Date: 20171211
  Receipt Date: 20171211
  Transmission Date: 20180321
  Serious: Yes (Hospitalization, Disabling, Other)
  Sender: FDA-Public Use
  Company Number: US-009507513-1108USA03400

PATIENT
  Sex: Female
  Weight: 102.97 kg

DRUGS (14)
  1. BONIVA [Suspect]
     Active Substance: IBANDRONATE SODIUM
     Indication: OSTEOPOROSIS
     Dosage: 150 MG, UNK
     Dates: start: 20060926, end: 201001
  2. ALBUTEROL. [Concomitant]
     Active Substance: ALBUTEROL
     Indication: ASTHMA
     Dates: start: 1997
  3. FOSAMAX PLUS D [Suspect]
     Active Substance: ALENDRONATE SODIUM\CHOLECALCIFEROL
     Indication: OSTEOPOROSIS
     Dosage: 70MG/2800 IU, QW
     Route: 048
     Dates: start: 20050929
  4. ASCORBIC ACID. [Concomitant]
     Active Substance: ASCORBIC ACID
     Dosage: UNK UNK, QD
     Dates: start: 1990
  5. OSTEO-BI-FLEX [Concomitant]
     Dosage: UNK UNK, QD
     Dates: start: 1990
  6. ADVAIR HFA [Concomitant]
     Active Substance: FLUTICASONE PROPIONATE\SALMETEROL XINAFOATE
     Indication: ASTHMA
     Dates: start: 2001
  7. NEXIUM [Concomitant]
     Active Substance: ESOMEPRAZOLE MAGNESIUM
  8. PROCARDIA [Concomitant]
     Active Substance: NIFEDIPINE
     Indication: CARDIAC DISORDER
     Dates: start: 1970
  9. VITAMIN E [Concomitant]
     Active Substance: .ALPHA.-TOCOPHEROL
     Dosage: UNK UNK, QD
     Dates: start: 1990
  10. SYNTHROID [Concomitant]
     Active Substance: LEVOTHYROXINE SODIUM
  11. FOSAMAX [Suspect]
     Active Substance: ALENDRONATE SODIUM
     Indication: OSTEOPOROSIS
     Dosage: 20 MG, UNK
     Route: 048
     Dates: start: 1998, end: 2001
  12. FOSAMAX [Suspect]
     Active Substance: ALENDRONATE SODIUM
     Indication: OSTEOPOROSIS
     Dosage: 70 MG, UNK
     Route: 048
     Dates: start: 2001, end: 20060926
  13. MK-9278 [Concomitant]
     Active Substance: VITAMINS
     Dosage: UNK UNK, QD
     Dates: start: 1990
  14. ATROVENT [Concomitant]
     Active Substance: IPRATROPIUM BROMIDE

REACTIONS (99)
  - Stress fracture [Not Recovered/Not Resolved]
  - Low turnover osteopathy [Not Recovered/Not Resolved]
  - Uterine disorder [Unknown]
  - Dyspnoea exertional [Unknown]
  - Abdominal pain lower [Unknown]
  - Cataract [Unknown]
  - Bundle branch block left [Unknown]
  - Sinusitis [Unknown]
  - Abdominal discomfort [Unknown]
  - Vomiting [Unknown]
  - Tooth disorder [Unknown]
  - Tooth disorder [Unknown]
  - Tooth disorder [Unknown]
  - Spinal osteoarthritis [Unknown]
  - Bladder disorder [Unknown]
  - Deafness [Unknown]
  - Calculus urinary [Not Recovered/Not Resolved]
  - Gastrointestinal disorder [Unknown]
  - Fall [Unknown]
  - Facial paralysis [Recovered/Resolved]
  - Laryngitis [Unknown]
  - Tooth disorder [Unknown]
  - Dental disorder prophylaxis [Unknown]
  - Stomatitis [Unknown]
  - Tooth fracture [Unknown]
  - Contusion [Unknown]
  - Synovial cyst [Unknown]
  - Osteoporosis [Not Recovered/Not Resolved]
  - Drug administration error [Unknown]
  - Hormone level abnormal [Unknown]
  - Liver disorder [Unknown]
  - Appendix disorder [Unknown]
  - Arteriosclerosis [Unknown]
  - Hyperglycaemia [Unknown]
  - Hydronephrosis [Unknown]
  - Tinnitus [Recovering/Resolving]
  - Nausea [Unknown]
  - Osteoarthritis [Unknown]
  - Tooth disorder [Unknown]
  - Pelvic pain [Unknown]
  - Phlebolith [Unknown]
  - Aortic calcification [Unknown]
  - Osteoarthritis [Unknown]
  - Osteoarthritis [Unknown]
  - Hepatic cyst [Unknown]
  - Urinary tract infection [Not Recovered/Not Resolved]
  - Conjunctival haemorrhage [Unknown]
  - Haemoglobin decreased [Unknown]
  - Haematuria [Unknown]
  - Weight increased [Unknown]
  - Tension [Recovering/Resolving]
  - Tooth disorder [Unknown]
  - Tooth disorder [Unknown]
  - Pollakiuria [Unknown]
  - Cerebrovascular accident [Unknown]
  - Femur fracture [Not Recovered/Not Resolved]
  - Hyperlipidaemia [Unknown]
  - Labyrinthitis [Recovering/Resolving]
  - Diverticulum [Unknown]
  - Upper-airway cough syndrome [Unknown]
  - Tooth disorder [Unknown]
  - Lumbar vertebral fracture [Unknown]
  - Urinary tract infection [Recovered/Resolved]
  - Gallbladder disorder [Unknown]
  - Hypercholesterolaemia [Unknown]
  - Constipation [Unknown]
  - Cataract [Unknown]
  - Joint effusion [Unknown]
  - Ureterolithiasis [Unknown]
  - Arteriosclerosis [Unknown]
  - Sinus disorder [Unknown]
  - Aphonia [Recovering/Resolving]
  - Stress urinary incontinence [Unknown]
  - Tooth loss [Unknown]
  - Dental caries [Unknown]
  - Tooth disorder [Unknown]
  - Ovarian atrophy [Unknown]
  - Myocardial infarction [Unknown]
  - Osteoarthritis [Unknown]
  - Arthralgia [Unknown]
  - Tinnitus [Unknown]
  - Oedema peripheral [Unknown]
  - Dysphonia [Recovering/Resolving]
  - Angina pectoris [Unknown]
  - Oedema peripheral [Unknown]
  - Intervertebral disc space narrowing [Unknown]
  - Joint injury [Not Recovered/Not Resolved]
  - Large intestine polyp [Unknown]
  - Hypertension [Unknown]
  - Depression [Unknown]
  - Large intestine polyp [Unknown]
  - Meniscus injury [Unknown]
  - Synovitis [Unknown]
  - Granuloma [Unknown]
  - Pain in extremity [Unknown]
  - Vertigo [Recovering/Resolving]
  - Stress urinary incontinence [Unknown]
  - Sinusitis [Unknown]
  - Oral disorder [Unknown]

NARRATIVE: CASE EVENT DATE: 1998
